FAERS Safety Report 4696585-0 (Version None)
Quarter: 2005Q2

REPORT INFORMATION
  Report Type: 
  Country: None (occurrence: None)
  Receive Date: 20050620
  Receipt Date: 20050328
  Transmission Date: 20051028
  Serious: Yes (Other)
  Sender: FDA-Public Use
  Company Number: 200512497US

PATIENT
  Sex: Male

DRUGS (6)
  1. LANTUS [Suspect]
     Dosage: 17 U HS
  2. LANTUS [Suspect]
     Dosage: 26 U QAM
  3. SYNTHROID [Concomitant]
  4. SIMVASTATIN [Concomitant]
  5. OTHER MEDICATION NOS [Concomitant]
  6. HUMALOG [Concomitant]

REACTIONS (3)
  - HYPOGLYCAEMIA [None]
  - HYPOGLYCAEMIC COMA [None]
  - WEIGHT INCREASED [None]
